FAERS Safety Report 5113759-5 (Version None)
Quarter: 2006Q3

REPORT INFORMATION
  Report Type: 
  Country: None (occurrence: None)
  Receive Date: 20060920
  Receipt Date: 20060413
  Transmission Date: 20061208
  Serious: Yes (Other)
  Sender: FDA-Public Use
  Company Number: 2006BH008112

PATIENT
  Sex: Female

DRUGS (2)
  1. SUPRANE [Suspect]
     Indication: ANAESTHESIA
     Dosage: ONCE
     Dates: start: 20060405, end: 20060405
  2. DRAEGER D-VAPOR S2000 [Concomitant]

REACTIONS (5)
  - BRONCHOSPASM [None]
  - CONVULSION [None]
  - DEVICE LEAKAGE [None]
  - DEVICE MALFUNCTION [None]
  - INCORRECT DOSE ADMINISTERED [None]
